FAERS Safety Report 7728622-0 (Version None)
Quarter: 2011Q3

REPORT INFORMATION
  Report Type: 
  Country: None (occurrence: None)
  Receive Date: 20110817
  Receipt Date: 20110530
  Transmission Date: 20111222
  Serious: Yes (Hospitalization, Other)
  Sender: FDA-Public Use
  Company Number: 201110659

PATIENT
  Age: 8 Year
  Sex: Male

DRUGS (1)
  1. LIORESAL [Suspect]
     Indication: MUSCLE SPASTICITY
     Dosage: MCG/DAY- SEE B5

REACTIONS (3)
  - MUSCLE SPASTICITY [None]
  - HOSPITALISATION [None]
  - DEVICE RELATED INFECTION [None]
